FAERS Safety Report 22689502 (Version 5)
Quarter: 2025Q4

REPORT INFORMATION
  Report Type: Report from Study
  Country: EG (occurrence: EG)
  Receive Date: 20230711
  Receipt Date: 20251020
  Transmission Date: 20260117
  Serious: Yes (Hospitalization, Other)
  Sender: ROCHE
  Company Number: EG-ROCHE-3382638

PATIENT
  Age: 42 Year
  Sex: Female
  Weight: 75.0 kg

DRUGS (1)
  1. OCREVUS [Suspect]
     Active Substance: OCRELIZUMAB
     Indication: Multiple sclerosis
     Dosage: 600 MG EVERY 6 MONTHS
     Route: 042
     Dates: start: 20220814

REACTIONS (15)
  - Urinary incontinence [Not Recovered/Not Resolved]
  - Headache [Not Recovered/Not Resolved]
  - Multiple sclerosis [Recovering/Resolving]
  - Weight increased [Not Recovered/Not Resolved]
  - Echinococciasis [Recovered/Resolved]
  - Vomiting [Not Recovered/Not Resolved]
  - Multiple sclerosis [Recovered/Resolved]
  - Multiple sclerosis [Recovered/Resolved]
  - Uterine cyst [Not Recovered/Not Resolved]
  - Cyst rupture [Not Recovered/Not Resolved]
  - Gastric infection [Not Recovered/Not Resolved]
  - Weight decreased [Not Recovered/Not Resolved]
  - Burning sensation [Not Recovered/Not Resolved]
  - Eye pain [Not Recovered/Not Resolved]
  - Withdrawal syndrome [Not Recovered/Not Resolved]

NARRATIVE: CASE EVENT DATE: 20230615
